FAERS Safety Report 13827702 (Version 1)
Quarter: 2017Q3

REPORT INFORMATION
  Report Type: Spontaneous
  Country: FR (occurrence: FR)
  Receive Date: 20170803
  Receipt Date: 20170803
  Transmission Date: 20171127
  Serious: Yes (Hospitalization, Congenital Anomaly)
  Sender: FDA-Public Use
  Company Number: FR-MERCK KGAA-2024105

PATIENT
  Sex: Male

DRUGS (5)
  1. NOVOTHYROX [Suspect]
     Active Substance: LEVOTHYROXINE SODIUM
     Indication: PRODUCT USED FOR UNKNOWN INDICATION
     Route: 064
  2. ADCIRCA [Suspect]
     Active Substance: TADALAFIL
     Route: 064
  3. SECTRAL [Suspect]
     Active Substance: ACEBUTOLOL HYDROCHLORIDE
     Route: 064
  4. FRAXODI [Suspect]
     Active Substance: NADROPARIN CALCIUM
     Route: 064
  5. PREVISCAN [Suspect]
     Active Substance: FLUINDIONE
     Route: 064

REACTIONS (4)
  - Foetal growth restriction [Recovering/Resolving]
  - Microcephaly [Recovering/Resolving]
  - Premature baby [Recovered/Resolved]
  - Oligohydramnios [Recovered/Resolved]
